FAERS Safety Report 9954348 (Version 1)
Quarter: 2014Q1

REPORT INFORMATION
  Report Type: Report from Study
  Country: US (occurrence: US)
  Receive Date: 20140304
  Receipt Date: 20140304
  Transmission Date: 20141002
  Serious: Yes (Hospitalization)
  Sender: FDA-Public Use
  Company Number: US-ABBVIE-13P-163-1081534-00

PATIENT
  Age: 51 Year
  Sex: Male
  Weight: 122.58 kg

DRUGS (3)
  1. HUMIRA [Suspect]
     Indication: RHEUMATOID ARTHRITIS
     Dates: start: 201210, end: 201211
  2. HUMIRA [Suspect]
     Dates: start: 201303
  3. VICODIN [Concomitant]
     Indication: PAIN

REACTIONS (1)
  - Diverticulitis [Recovered/Resolved]
